FAERS Safety Report 22160598 (Version 2)
Quarter: 2023Q2

REPORT INFORMATION
  Report Type: Spontaneous
  Country: CN (occurrence: CN)
  Receive Date: 20230331
  Receipt Date: 20230410
  Transmission Date: 20230721
  Serious: Yes (Other)
  Sender: FDA-Public Use
  Company Number: CN-BAYER-2023A041421

PATIENT
  Age: 48 Year
  Sex: Male
  Weight: 53 kg

DRUGS (4)
  1. KOVALTRY [Suspect]
     Active Substance: ANTIHEMOPHILIC FACTOR, HUMAN RECOMBINANT
     Indication: Gastric cancer
     Dosage: 200 MG, QD
     Route: 041
     Dates: start: 20230303, end: 20230303
  2. DOCETAXEL [Suspect]
     Active Substance: DOCETAXEL
     Indication: Gastric cancer
     Dosage: 110 MG, QD
     Route: 041
     Dates: start: 20230228, end: 20230303
  3. FLUOROURACIL [Suspect]
     Active Substance: FLUOROURACIL
     Indication: Gastric cancer
     Dosage: 5.4 G INTRAPUMP INJECTION 72H
     Route: 042
     Dates: start: 20230228, end: 20230303
  4. SINTILIMAB [Suspect]
     Active Substance: SINTILIMAB
     Indication: Gastric cancer
     Dosage: 200 MG
     Dates: start: 20230228, end: 20230303

REACTIONS (2)
  - Myelosuppression [Unknown]
  - Off label use [None]

NARRATIVE: CASE EVENT DATE: 20230301
